FAERS Safety Report 7593777-8 (Version None)
Quarter: 2011Q3

REPORT INFORMATION
  Report Type: 
  Country: None (occurrence: None)
  Receive Date: 20110706
  Receipt Date: 20110623
  Transmission Date: 20111222
  Serious: Yes (Other)
  Sender: FDA-Public Use
  Company Number: PHHY2011FR50632

PATIENT
  Sex: Female

DRUGS (5)
  1. ZOLPIDEM [Concomitant]
     Indication: SLEEP DISORDER
     Dosage: 0.5 DF, QD
  2. ZOLEDRONIC ACID [Suspect]
     Indication: OSTEOPOROSIS
     Dosage: UNK UKN, UNK
     Route: 042
     Dates: start: 20090501
  3. ZOLEDRONIC ACID [Suspect]
     Dosage: UNK UKN, UNK
     Route: 042
     Dates: start: 20100501
  4. UVEDOSE [Concomitant]
     Indication: OSTEOPOROSIS
     Dosage: 1 DF, Q3MO
  5. CACIT [Concomitant]
     Indication: OSTEOPOROSIS
     Dosage: 1000 MG, QD

REACTIONS (4)
  - ELECTROCARDIOGRAM QRS COMPLEX SHORTENED [None]
  - MITRAL VALVE INCOMPETENCE [None]
  - ATRIAL FIBRILLATION [None]
  - EJECTION FRACTION DECREASED [None]
